FAERS Safety Report 6615215-1 (Version None)
Quarter: 2010Q1

REPORT INFORMATION
  Report Type: 
  Country: None (occurrence: None)
  Receive Date: 20100305
  Receipt Date: 20100223
  Transmission Date: 20100710
  Serious: Yes (Hospitalization)
  Sender: FDA-Public Use
  Company Number: US-NOVOPROD-301574

PATIENT
  Sex: Male
  Weight: 57 kg

DRUGS (5)
  1. NORDITROPIN NORDIFLEX [Suspect]
     Indication: GROWTH HORMONE DEFICIENCY
     Dosage: 2.025 MG, QD
     Route: 058
     Dates: start: 20080815
  2. NORDITROPIN NORDIFLEX [Suspect]
     Dosage: 2.55 MG, QD
     Route: 058
  3. CLARITIN                           /00413701/ [Concomitant]
     Dosage: 1 TAB, PRN
     Route: 048
  4. NASONEX [Concomitant]
     Dosage: 1 PUFF, PRN
     Route: 045
  5. MULTIVITAMIN                       /00097801/ [Concomitant]
     Dosage: 1 TAB, QD
     Route: 048

REACTIONS (1)
  - APPENDICITIS [None]
